FAERS Safety Report 4945030-6 (Version None)
Quarter: 2006Q1

REPORT INFORMATION
  Report Type: 
  Country: None (occurrence: None)
  Receive Date: 20060117
  Receipt Date: 20050720
  Transmission Date: 20060701
  Serious: Yes (Hospitalization)
  Sender: FDA-Public Use
  Company Number: A03200502184

PATIENT
  Age: 94 Year
  Sex: Female
  Weight: 46.71 kg

DRUGS (18)
  1. PLAVIX [Suspect]
     Indication: ANGIOGRAM
     Dosage: 75 MG QD - ORAL
     Route: 048
     Dates: start: 20020101
  2. FOLIC ACID [Concomitant]
  3. DIGOXIN [Concomitant]
  4. LISINOPRIL [Concomitant]
  5. CARBIDOPA AND LEVODOPA [Concomitant]
  6. ISOSORBIDE MONONITRATE [Concomitant]
  7. METOPROLOL [Concomitant]
  8. ACETYLSALICYLIC ACID SRT [Concomitant]
  9. FUROSEMIDE [Concomitant]
  10. ATORVASTATIN CALCIUM [Concomitant]
  11. ALENDRONATE SODIUM [Concomitant]
  12. VITAMINS [Concomitant]
  13. HOMOCYSTEINE THIOLACTONE [Concomitant]
  14. LUTEIN [Concomitant]
  15. ASCORBIC ACID [Concomitant]
  16. VITAMIN B-12 [Concomitant]
  17. MAGNESIUM [Concomitant]
  18. VITAMINS [Concomitant]

REACTIONS (1)
  - TRANSIENT ISCHAEMIC ATTACK [None]
